FAERS Safety Report 4949474-8 (Version None)
Quarter: 2006Q1

REPORT INFORMATION
  Report Type: 
  Country: None (occurrence: None)
  Receive Date: 20060321
  Receipt Date: 20060315
  Transmission Date: 20060701
  Serious: Yes (Other)
  Sender: FDA-Public Use
  Company Number: PHEH2006US03463

PATIENT
  Age: 67 Year
  Sex: Male

DRUGS (2)
  1. DIOVAN [Suspect]
     Indication: HYPERTENSION
     Dosage: 80 MG, BID
     Route: 048
     Dates: start: 20060225, end: 20060312
  2. DIOVAN [Suspect]
     Dosage: 1/2 OF 320MG
     Route: 048
     Dates: start: 20060313

REACTIONS (3)
  - BLOOD PRESSURE INADEQUATELY CONTROLLED [None]
  - DYSPHAGIA [None]
  - OESOPHAGEAL SPASM [None]
